FAERS Safety Report 6576468-1 (Version None)
Quarter: 2010Q1

REPORT INFORMATION
  Report Type: 
  Country: None (occurrence: None)
  Receive Date: 20100210
  Receipt Date: 20091106
  Transmission Date: 20100710
  Serious: No
  Sender: FDA-Public Use
  Company Number: A0815793A

PATIENT
  Age: 36 Year
  Sex: Male

DRUGS (3)
  1. ALTABAX [Suspect]
     Dosage: 18G TWICE PER DAY
     Route: 061
     Dates: start: 20091030, end: 20091105
  2. AUGMENTIN [Suspect]
     Route: 048
     Dates: start: 20091026, end: 20091028
  3. UNKNOWN MEDICATION [Concomitant]

REACTIONS (3)
  - APPLICATION SITE IRRITATION [None]
  - APPLICATION SITE PAIN [None]
  - DRUG INEFFECTIVE [None]
